FAERS Safety Report 5114535-X (Version None)
Quarter: 2006Q3

REPORT INFORMATION
  Report Type: 
  Country: None (occurrence: None)
  Receive Date: 20060922
  Receipt Date: 20060922
  Transmission Date: 20061208
  Serious: No
  Sender: FDA-Public Use
  Company Number: None

PATIENT
  Age: 86 Year
  Sex: Female
  Weight: 61.6892 kg

DRUGS (1)
  1. IBUPROFEN [Suspect]
     Indication: OEDEMA
     Dosage: 1 TABLET   2 TIMES/DAY
     Dates: start: 20060821, end: 20060829

REACTIONS (1)
  - OEDEMA PERIPHERAL [None]
